FAERS Safety Report 23122380 (Version 1)
Quarter: 2023Q4

REPORT INFORMATION
  Report Type: Other
  Country: ES (occurrence: ES)
  Receive Date: 20231030
  Receipt Date: 20231030
  Transmission Date: 20240109
  Serious: Yes (Other)
  Sender: FDA-Public Use
  Company Number: None

PATIENT

DRUGS (3)
  1. GABAPENTIN [Interacting]
     Active Substance: GABAPENTIN
     Indication: Substance abuse
     Dosage: UNK
     Route: 048
     Dates: start: 20230913, end: 20230913
  2. QUETIAPINE [Interacting]
     Active Substance: QUETIAPINE
     Indication: Substance abuse
     Dosage: 400 MILLIGRAM, TOTAL
     Route: 045
     Dates: start: 20230913, end: 20230913
  3. RIVOTRIL [Interacting]
     Active Substance: CLONAZEPAM
     Indication: Substance abuse
     Dosage: UNK
     Route: 048
     Dates: start: 20230913, end: 20230913

REACTIONS (4)
  - Depressed level of consciousness [Recovered/Resolved]
  - Dysarthria [Recovered/Resolved]
  - Ataxia [Recovered/Resolved]
  - Intentional overdose [Recovered/Resolved]

NARRATIVE: CASE EVENT DATE: 20230913
